FAERS Safety Report 16768766 (Version 3)
Quarter: 2019Q4

REPORT INFORMATION
  Report Type: Spontaneous
  Country: US (occurrence: US)
  Receive Date: 20190903
  Receipt Date: 20191014
  Transmission Date: 20200122
  Serious: Yes (Other)
  Sender: FDA-Public Use
  Company Number: US-SA-2019SA244777

PATIENT
  Age: 53 Year
  Sex: Male
  Weight: 68.1 kg

DRUGS (1)
  1. DUPIXENT [Suspect]
     Active Substance: DUPILUMAB
     Indication: DERMATITIS ATOPIC
     Dosage: 300 MG, QOW
     Route: 058
     Dates: start: 20190523, end: 20190801

REACTIONS (3)
  - Herpes oesophagitis [Recovering/Resolving]
  - Dysphagia [Unknown]
  - Weight decreased [Unknown]
